FAERS Safety Report 9215539 (Version 1)
Quarter: 2013Q2

REPORT INFORMATION
  Report Type: Spontaneous
  Country: US (occurrence: US)
  Receive Date: 20130407
  Receipt Date: 20130407
  Transmission Date: 20140414
  Serious: No
  Sender: FDA-Public Use
  Company Number: US-009507513-1304USA002419

PATIENT
  Sex: Male

DRUGS (2)
  1. INVANZ [Suspect]
     Indication: LOCALISED INFECTION
     Dosage: PRESCRIPTION BAG STATES 1000 MG
     Route: 042
     Dates: start: 201303
  2. METFORMIN [Concomitant]

REACTIONS (2)
  - Blood glucose abnormal [Unknown]
  - Incorrect drug administration duration [Unknown]
